FAERS Safety Report 20810441 (Version 1)
Quarter: 2022Q2

REPORT INFORMATION
  Report Type: Spontaneous
  Country: US (occurrence: US)
  Receive Date: 20220510
  Receipt Date: 20220510
  Transmission Date: 20220720
  Serious: No
  Sender: FDA-Public Use
  Company Number: US-GLAUKOS-AVE-2021-0174-AE

PATIENT

DRUGS (4)
  1. PHOTREXA VISCOUS [Suspect]
     Active Substance: RIBOFLAVIN 5^-PHOSPHATE SODIUM
     Indication: Keratoconus
     Route: 047
     Dates: start: 20210616, end: 20210616
  2. PHOTREXA [Suspect]
     Active Substance: RIBOFLAVIN 5^-PHOSPHATE SODIUM
     Indication: Keratoconus
     Dosage: EVERY 2 MINUTES FOR 30 MINUTES
     Route: 047
     Dates: start: 20210616, end: 20210616
  3. PHOTREXA [Suspect]
     Active Substance: RIBOFLAVIN 5^-PHOSPHATE SODIUM
     Dosage: RE-ADMINISTERED EVERY 2 MINUTES FOR 30 MINUTES
     Route: 047
     Dates: start: 20210616, end: 20210616
  4. DEVICE [Suspect]
     Active Substance: DEVICE
     Indication: Keratoconus
     Route: 047
     Dates: start: 20210616, end: 20210616

REACTIONS (4)
  - Inappropriate schedule of product administration [Unknown]
  - Incorrect product administration duration [Unknown]
  - Therapy interrupted [Unknown]
  - No adverse event [Unknown]

NARRATIVE: CASE EVENT DATE: 20210616
